FAERS Safety Report 15809975 (Version 1)
Quarter: 2019Q1

REPORT INFORMATION
  Report Type: Spontaneous
  Country: US (occurrence: US)
  Receive Date: 20190111
  Receipt Date: 20190111
  Transmission Date: 20190417
  Serious: Yes (Death)
  Sender: FDA-Public Use
  Company Number: US-ROCHE-2130655

PATIENT
  Age: 77 Year
  Sex: Female

DRUGS (2)
  1. RITUXAN [Suspect]
     Active Substance: RITUXIMAB
     Route: 065
     Dates: start: 20180314
  2. RITUXAN [Suspect]
     Active Substance: RITUXIMAB
     Indication: OPSOCLONUS MYOCLONUS
     Dosage: ONGOING: UNKNOWN
     Route: 065
     Dates: start: 201802

REACTIONS (5)
  - Cognitive disorder [Not Recovered/Not Resolved]
  - Pneumonia [Fatal]
  - Off label use [Unknown]
  - Intentional product use issue [Unknown]
  - Dysphemia [Not Recovered/Not Resolved]

NARRATIVE: CASE EVENT DATE: 201802
